FAERS Safety Report 6847852-3 (Version None)
Quarter: 2010Q3

REPORT INFORMATION
  Report Type: 
  Country: None (occurrence: None)
  Receive Date: 20100716
  Receipt Date: 20100713
  Transmission Date: 20110219
  Serious: Yes (Hospitalization)
  Sender: FDA-Public Use
  Company Number: US-BRISTOL-MYERS SQUIBB COMPANY-15163298

PATIENT
  Age: 58 Year
  Sex: Female
  Weight: 80 kg

DRUGS (7)
  1. COUMADIN [Suspect]
     Route: 065
     Dates: start: 20100105, end: 20100502
  2. REVLIMID [Suspect]
     Indication: MULTIPLE MYELOMA
     Dosage: TEMPORARILY INTERRUPTED:03MAY10 TO 04MAY10.RESTARTED ON MAY10. 21 DAYS ON AND 07 DAYS OFF
     Route: 048
     Dates: start: 20100105
  3. ACETYLSALICYLIC ACID [Concomitant]
     Dates: start: 20100506
  4. DECADRON [Concomitant]
     Dates: start: 20100105, end: 20100502
  5. GABAPENTIN [Concomitant]
     Indication: NEUROPATHY PERIPHERAL
  6. ZOMETA [Concomitant]
  7. MS CONTIN [Concomitant]
     Indication: PAIN
     Dosage: 1 DF = 2(UNITS NOT MENTIONED)

REACTIONS (3)
  - GASTRITIS [None]
  - GASTROINTESTINAL HAEMORRHAGE [None]
  - NEUROPATHY PERIPHERAL [None]
